FAERS Safety Report 14931467 (Version 1)
Quarter: 2018Q2

REPORT INFORMATION
  Report Type: Report from Study
  Country: None (occurrence: US)
  Receive Date: 20180524
  Receipt Date: 20180524
  Transmission Date: 20180711
  Serious: Yes (Other)
  Sender: FDA-Public Use
  Company Number: US-ABBVIE-17K-163-1948494-00

PATIENT
  Age: 67 Year
  Sex: Female

DRUGS (2)
  1. HUMIRA [Suspect]
     Active Substance: ADALIMUMAB
     Route: 058
  2. HUMIRA [Suspect]
     Active Substance: ADALIMUMAB
     Indication: RHEUMATOID ARTHRITIS
     Route: 058
     Dates: start: 201611

REACTIONS (12)
  - Pain [Unknown]
  - Precancerous skin lesion [Unknown]
  - Fatigue [Unknown]
  - Rheumatoid arthritis [Recovered/Resolved]
  - Cyst [Unknown]
  - Weight decreased [Unknown]
  - Therapeutic response shortened [Not Recovered/Not Resolved]
  - Rash papular [Unknown]
  - Influenza [Recovered/Resolved]
  - Incorrect dose administered [Unknown]
  - Poor quality sleep [Not Recovered/Not Resolved]
  - Asthenia [Unknown]

NARRATIVE: CASE EVENT DATE: 20170418
